FAERS Safety Report 16740633 (Version 1)
Quarter: 2019Q3

REPORT INFORMATION
  Report Type: Spontaneous
  Country: JP (occurrence: JP)
  Receive Date: 20190826
  Receipt Date: 20190826
  Transmission Date: 20191005
  Serious: Yes (Other)
  Sender: FDA-Public Use
  Company Number: JP-ROCHE-2385038

PATIENT
  Sex: Female

DRUGS (1)
  1. XOLAIR [Suspect]
     Active Substance: OMALIZUMAB
     Indication: ASTHMA
     Route: 058
     Dates: start: 20190808

REACTIONS (15)
  - Loss of personal independence in daily activities [Unknown]
  - Tremor [Not Recovered/Not Resolved]
  - Dysphonia [Not Recovered/Not Resolved]
  - Depressed level of consciousness [Unknown]
  - Shoplifting [Unknown]
  - Abnormal behaviour [Unknown]
  - Memory impairment [Unknown]
  - Seizure [Not Recovered/Not Resolved]
  - Language disorder [Not Recovered/Not Resolved]
  - Hallucination [Unknown]
  - Generalised tonic-clonic seizure [Unknown]
  - Dissociation [Unknown]
  - Asthenia [Unknown]
  - Stereotypy [Not Recovered/Not Resolved]
  - Taste disorder [Unknown]
